FAERS Safety Report 15122721 (Version 1)
Quarter: 2018Q3

REPORT INFORMATION
  Report Type: Spontaneous
  Country: US (occurrence: US)
  Receive Date: 20180709
  Receipt Date: 20180709
  Transmission Date: 20181010
  Serious: Yes (Hospitalization, Other)
  Sender: FDA-Public Use
  Company Number: US-SA-2018SA173434

PATIENT
  Age: 83 Year
  Sex: Female

DRUGS (1)
  1. DULCOLAX NOS [Suspect]
     Active Substance: BISACODYL OR DOCUSATE SODIUM
     Route: 054

REACTIONS (7)
  - Discoloured vomit [Unknown]
  - Hypotension [Unknown]
  - Intestinal ischaemia [Unknown]
  - Loss of consciousness [Unknown]
  - Vomiting [Unknown]
  - Rectal haemorrhage [Unknown]
  - Feeding tube user [Unknown]

NARRATIVE: CASE EVENT DATE: 2017
